FAERS Safety Report 6586245-3 (Version None)
Quarter: 2010Q1

REPORT INFORMATION
  Report Type: 
  Country: None (occurrence: None)
  Receive Date: 20100217
  Receipt Date: 20090119
  Transmission Date: 20100710
  Serious: No
  Sender: FDA-Public Use
  Company Number: US-ALLERGAN-0900393US

PATIENT
  Sex: Female

DRUGS (7)
  1. BOTOX COSMETIC [Suspect]
     Indication: SKIN WRINKLING
     Dosage: 42 UNITS, SINGLE
     Route: 030
     Dates: start: 20090113, end: 20090113
  2. ATIVAN [Concomitant]
     Indication: DRUG USE FOR UNKNOWN INDICATION
     Dosage: 2 MG, BID
  3. NEURONTIN [Concomitant]
     Indication: DRUG USE FOR UNKNOWN INDICATION
     Dosage: 300 MG, TID
  4. MELLARIL [Concomitant]
     Indication: DRUG USE FOR UNKNOWN INDICATION
  5. TOPAMAX [Concomitant]
     Indication: DRUG USE FOR UNKNOWN INDICATION
  6. SANCTURA XR [Concomitant]
     Indication: DRUG USE FOR UNKNOWN INDICATION
  7. WELLBUTRIN [Concomitant]
     Indication: DRUG USE FOR UNKNOWN INDICATION

REACTIONS (2)
  - ANXIETY [None]
  - FATIGUE [None]
